FAERS Safety Report 8590224 (Version 3)
Quarter: 2012Q4

REPORT INFORMATION
  Report Type: 
  Country: FR (occurrence: FR)
  Receive Date: 20120601
  Receipt Date: 20121031
  Transmission Date: 20130627
  Serious: Yes (Other)
  Sender: FDA-Public Use
  Company Number: FR-BAYER-2012-053623

PATIENT
  Age: 34 Year
  Sex: Female

DRUGS (2)
  1. QLAIRA [Suspect]
     Dosage: 1 DF, QD
     Route: 048
  2. VENLAFAXINE [Suspect]
     Dosage: 1 DF, QD
     Route: 048

REACTIONS (2)
  - Pregnancy on oral contraceptive [Recovered/Resolved]
  - Abortion spontaneous [Recovered/Resolved]
